FAERS Safety Report 16589198 (Version 8)
Quarter: 2025Q3

REPORT INFORMATION
  Report Type: Report from Study
  Country: EU (occurrence: EU)
  Receive Date: 20190718
  Receipt Date: 20250910
  Transmission Date: 20251020
  Serious: Yes (Congenital Anomaly)
  Sender: ABBVIE
  Company Number: EU-009507513-1907AUT004368

PATIENT
  Sex: Female

DRUGS (7)
  1. LOPINAVIR\RITONAVIR [Suspect]
     Active Substance: LOPINAVIR\RITONAVIR
     Indication: Maternal exposure timing unspecified
     Route: 064
  2. ZIDOVUDINE [Suspect]
     Active Substance: ZIDOVUDINE
     Indication: Maternal exposure timing unspecified
     Route: 064
  3. PREZISTA [Suspect]
     Active Substance: DARUNAVIR ETHANOLATE
     Indication: Maternal exposure timing unspecified
     Route: 064
  4. FUZEON [Suspect]
     Active Substance: ENFUVIRTIDE
     Indication: Maternal exposure timing unspecified
     Route: 064
  5. LAMIVUDINE AND ZIDOVUDINE [Suspect]
     Active Substance: LAMIVUDINE\ZIDOVUDINE
     Indication: Maternal exposure timing unspecified
     Route: 064
  6. ISENTRESS [Suspect]
     Active Substance: RALTEGRAVIR POTASSIUM
     Indication: Maternal exposure timing unspecified
     Route: 064
  7. PENICILLIN V [Suspect]
     Active Substance: PENICILLIN V
     Indication: Maternal exposure timing unspecified
     Route: 064

REACTIONS (2)
  - Plagiocephaly [Unknown]
  - Foetal exposure during pregnancy [Unknown]
